FAERS Safety Report 13415086 (Version 1)
Quarter: 2017Q2

REPORT INFORMATION
  Report Type: Spontaneous
  Country: US (occurrence: US)
  Receive Date: 20170407
  Receipt Date: 20170407
  Transmission Date: 20170830
  Serious: Yes (Other)
  Sender: FDA-Public Use
  Company Number: None

PATIENT
  Age: 44 Year
  Sex: Female
  Weight: 72 kg

DRUGS (3)
  1. NAPROXEN. [Concomitant]
     Active Substance: NAPROXEN
  2. ALPRAZOLAM 0.25 MG [Suspect]
     Active Substance: ALPRAZOLAM
     Indication: CARDIAC DISORDER
     Route: 048
     Dates: start: 20170223, end: 20170405
  3. BENOFYN [Concomitant]

REACTIONS (2)
  - Lipoatrophy [None]
  - Body mass index decreased [None]

NARRATIVE: CASE EVENT DATE: 20170405
